FAERS Safety Report 7622843-3 (Version None)
Quarter: 2011Q3

REPORT INFORMATION
  Report Type: 
  Country: None (occurrence: None)
  Receive Date: 20110720
  Receipt Date: 20110712
  Transmission Date: 20111222
  Serious: Yes (Other)
  Sender: FDA-Public Use
  Company Number: US-ASTELLAS-2011US003893

PATIENT

DRUGS (11)
  1. NOVOLIN 70/30 [Concomitant]
     Indication: DIABETES MELLITUS
     Dosage: 50 U, BID
     Route: 065
     Dates: start: 19900101
  2. ASPIRIN [Concomitant]
     Indication: ANTICOAGULANT THERAPY
     Dosage: 81 MG, UID/QD
     Route: 048
     Dates: start: 20060101
  3. BUMETANIDE [Concomitant]
     Indication: OEDEMA
     Dosage: 6 MG, UID/QD
     Route: 048
     Dates: start: 20000101
  4. METOPROLOL TARTRATE [Concomitant]
     Indication: CARDIAC DISORDER
     Dosage: 150 MG, BID
     Route: 048
     Dates: start: 20060101
  5. LISINOPRIL [Concomitant]
     Indication: HYPERTENSION
     Dosage: 10 MG, UID/QD
     Route: 048
     Dates: start: 20060101
  6. CLONAZEPAM [Concomitant]
     Indication: CONVULSION PROPHYLAXIS
     Dosage: 0.5 MG, BID
     Route: 048
     Dates: start: 20000112
  7. PROGRAF [Suspect]
     Indication: LIVER TRANSPLANT
     Dosage: 1 MG, BID
     Route: 048
     Dates: start: 20000112
  8. SIMVASTATIN [Concomitant]
     Indication: BLOOD CHOLESTEROL
     Dosage: 40 MG, UID/QD
     Route: 048
     Dates: start: 20080101
  9. PLAVIX [Concomitant]
     Indication: CARDIAC DISORDER
     Dosage: 75 MG, UID/QD
     Route: 048
     Dates: start: 20060101
  10. COUMADIN [Concomitant]
     Indication: ANTICOAGULANT THERAPY
     Dosage: 2.5 MG, 4XWEEKLY
     Route: 048
     Dates: start: 20060101
  11. COUMADIN [Concomitant]
     Dosage: 5 MG, 3XWEEKLY
     Route: 048
     Dates: start: 20060101

REACTIONS (2)
  - CORONARY ARTERIAL STENT INSERTION [None]
  - BILE DUCT STONE [None]
